FAERS Safety Report 7398897-9 (Version None)
Quarter: 2011Q1

REPORT INFORMATION
  Report Type: 
  Country: None (occurrence: None)
  Receive Date: 20110328
  Receipt Date: 20110216
  Transmission Date: 20110831
  Serious: No
  Sender: FDA-Public Use
  Company Number: 2011-00075

PATIENT
  Age: 28 Year
  Sex: Male
  Weight: 108.8633 kg

DRUGS (1)
  1. ZICAM COLD REMEDY RAPIDMELTS W/VITAMIN C + ECHINACEA [Suspect]
     Dosage: 3 DOSES X 1 DAY
     Dates: start: 20110215, end: 20110215

REACTIONS (1)
  - ANOSMIA [None]
